FAERS Safety Report 9321746 (Version 2)
Quarter: 2013Q2

REPORT INFORMATION
  Report Type: Report from Study
  Country: CA (occurrence: CA)
  Receive Date: 20130531
  Receipt Date: 20130603
  Transmission Date: 20140414
  Serious: Yes (Other)
  Sender: FDA-Public Use
  Company Number: PHHY2013CA055161

PATIENT
  Age: 50 Year
  Sex: Female

DRUGS (4)
  1. ACLASTA [Suspect]
     Indication: OSTEOPOROSIS
     Dosage: UNK
     Route: 042
     Dates: start: 20090625
  2. ACLASTA [Suspect]
     Dosage: UNK
     Route: 042
     Dates: start: 20100527
  3. ACLASTA [Suspect]
     Dosage: UNK
     Route: 042
     Dates: start: 20110527
  4. ACLASTA [Suspect]
     Dosage: UNK
     Route: 042
     Dates: start: 20120523

REACTIONS (2)
  - Humerus fracture [Recovering/Resolving]
  - Accident [Recovering/Resolving]
